FAERS Safety Report 4751766-2 (Version None)
Quarter: 2005Q3

REPORT INFORMATION
  Report Type: 
  Country: None (occurrence: None)
  Receive Date: 20050823
  Receipt Date: 20050823
  Transmission Date: 20060218
  Serious: Yes (Other)
  Sender: FDA-Public Use
  Company Number: None

PATIENT
  Age: 56 Year
  Sex: Female
  Weight: 136.0791 kg

DRUGS (1)
  1. SEROQUEL [Suspect]
     Indication: DEPRESSION
     Dates: start: 20030101

REACTIONS (6)
  - DEPRESSION [None]
  - FEAR OF WEIGHT GAIN [None]
  - HYPERSOMNIA [None]
  - ORAL INTAKE REDUCED [None]
  - SEDATION [None]
  - WEIGHT INCREASED [None]
